FAERS Safety Report 25289404 (Version 1)
Quarter: 2025Q2

REPORT INFORMATION
  Report Type: Spontaneous
  Country: US (occurrence: None)
  Receive Date: 20250509
  Receipt Date: 20250509
  Transmission Date: 20250716
  Serious: Yes (Death)
  Sender: FDA-CTU
  Company Number: None

PATIENT
  Age: 15 Year
  Sex: Female

DRUGS (25)
  1. GATTEX [Suspect]
     Active Substance: TEDUGLUTIDE\WATER
     Indication: Graft versus host disease
     Dosage: 5MG QD INJECTABLE
     Route: 050
     Dates: start: 20250127, end: 20250407
  2. AMLODIPINE [Concomitant]
     Active Substance: AMLODIPINE BESYLATE
  3. ARIPIPRAZOLE [Concomitant]
     Active Substance: ARIPIPRAZOLE
  4. ENALAPRIL [Concomitant]
     Active Substance: ENALAPRIL
  5. HYDROMORPHONE [Concomitant]
     Active Substance: HYDROMORPHONE
  6. METHYLPHENIDATE [Concomitant]
     Active Substance: METHYLPHENIDATE
  7. BENADRYL [Concomitant]
     Active Substance: DIPHENHYDRAMINE HYDROCHLORIDE
  8. OLANZAPINE [Concomitant]
     Active Substance: OLANZAPINE
  9. insulin lispro, [Concomitant]
  10. insulin a.spa.rt, [Concomitant]
  11. INSULIN NOS [Concomitant]
     Active Substance: INSULIN NOS
  12. TRANEXAMIC ACID [Concomitant]
     Active Substance: TRANEXAMIC ACID
  13. SENNOSIDES [Concomitant]
     Active Substance: SENNOSIDES
  14. FAMOTIDINE [Concomitant]
     Active Substance: FAMOTIDINE
  15. METHYLPREDNISOLONE [Concomitant]
     Active Substance: METHYLPREDNISOLONE
  16. breyna HFA, [Concomitant]
  17. FUROSEMIDE [Concomitant]
     Active Substance: FUROSEMIDE
  18. MIRTAZAPINE [Concomitant]
     Active Substance: MIRTAZAPINE
  19. BUDESONIDE [Concomitant]
     Active Substance: BUDESONIDE
  20. RUXOLITINIB [Concomitant]
     Active Substance: RUXOLITINIB
  21. URSODIOL [Concomitant]
     Active Substance: URSODIOL
  22. HYDROCORTISONE [Concomitant]
     Active Substance: HYDROCORTISONE
  23. SCOPOLAMINE [Concomitant]
     Active Substance: SCOPOLAMINE
  24. ACYCLOVIR [Concomitant]
     Active Substance: ACYCLOVIR
  25. WIXELA INHUB [Concomitant]
     Active Substance: FLUTICASONE PROPIONATE\SALMETEROL XINAFOATE

REACTIONS (5)
  - Hepatopulmonary syndrome [None]
  - Hepatic function abnormal [None]
  - Renal impairment [None]
  - Mental status changes [None]
  - Femur fracture [None]

NARRATIVE: CASE EVENT DATE: 20250407
